FAERS Safety Report 8029259-9 (Version None)
Quarter: 2012Q1

REPORT INFORMATION
  Report Type: 
  Country: None (occurrence: None)
  Receive Date: 20120106
  Receipt Date: 20111229
  Transmission Date: 20120608
  Serious: Yes (Hospitalization)
  Sender: FDA-Public Use
  Company Number: US-DX529-2011DX000109

PATIENT
  Age: 25 Year
  Sex: Male

DRUGS (5)
  1. CINRYZE [Concomitant]
     Indication: HEREDITARY ANGIOEDEMA
  2. KALBITOR [Suspect]
     Indication: ABDOMINAL PAIN
     Route: 058
     Dates: start: 20111220, end: 20111220
  3. KALBITOR [Suspect]
     Indication: HEREDITARY ANGIOEDEMA
     Route: 058
     Dates: start: 20111220, end: 20111220
  4. KALBITOR [Suspect]
     Route: 058
  5. KALBITOR [Suspect]
     Route: 058

REACTIONS (2)
  - OFF LABEL USE [None]
  - LOBAR PNEUMONIA [None]
